FAERS Safety Report 5211883-X (Version None)
Quarter: 2007Q1

REPORT INFORMATION
  Report Type: 
  Country: None (occurrence: None)
  Receive Date: 20070118
  Receipt Date: 20070110
  Transmission Date: 20070707
  Serious: Yes (Death, Life-Threatening)
  Sender: FDA-Public Use
  Company Number: FR-BRISTOL-MYERS SQUIBB COMPANY-13640289

PATIENT
  Age: 49 Year
  Sex: Male

DRUGS (18)
  1. REYATAZ [Suspect]
     Indication: HIV INFECTION
     Route: 048
     Dates: start: 20061116, end: 20061128
  2. REYATAZ [Suspect]
     Indication: HIV INFECTION
     Dosage: GASTRIC CATHETER
     Route: 050
     Dates: start: 20061202
  3. ZIAGEN [Suspect]
     Indication: HIV INFECTION
     Route: 048
     Dates: start: 20061116, end: 20061128
  4. ZIAGEN [Suspect]
     Dosage: VIA GASTRIC CATHETER
     Route: 050
     Dates: start: 20061202
  5. EPIVIR [Suspect]
     Indication: HIV INFECTION
     Route: 048
     Dates: start: 20061116, end: 20061128
  6. EPIVIR [Suspect]
     Dosage: VIA GASTRIC CATHETER
     Route: 050
     Dates: start: 20061202
  7. NORVIR [Suspect]
     Indication: HIV INFECTION
     Route: 048
     Dates: start: 20061116, end: 20061128
  8. NORVIR [Suspect]
     Dosage: GASTRIC CATHETER
     Route: 050
     Dates: start: 20061202
  9. MOXIFLOXACIN HYDROCHLORIDE [Suspect]
     Route: 048
     Dates: start: 20061128
  10. TRIFLUCAN [Suspect]
     Route: 048
  11. CLARITHROMYCIN [Concomitant]
  12. ETHAMBUTOL HYDROCHLORIDE [Concomitant]
     Dates: start: 20061010
  13. CYMEVAN [Concomitant]
     Dates: end: 20061128
  14. ROVALCYTE [Concomitant]
     Dates: start: 20061128
  15. BACTRIM [Concomitant]
     Dates: start: 20061201, end: 20061204
  16. TRIFLUCAN [Concomitant]
     Dates: start: 20061201, end: 20061214
  17. PRAZEPAM [Concomitant]
     Dates: start: 20061129, end: 20061204
  18. EFFEXOR [Concomitant]
     Dates: start: 20061129, end: 20061204

REACTIONS (6)
  - AGRANULOCYTOSIS [None]
  - GENERAL PHYSICAL HEALTH DETERIORATION [None]
  - INFECTION [None]
  - PANCYTOPENIA [None]
  - URETHRITIS [None]
  - WEIGHT DECREASED [None]
